FAERS Safety Report 9355214 (Version 2)
Quarter: 2013Q4

REPORT INFORMATION
  Report Type: Report from Study
  Country: AR (occurrence: AR)
  Receive Date: 20130619
  Receipt Date: 20131011
  Transmission Date: 20140711
  Serious: Yes (Hospitalization, Other)
  Sender: FDA-Public Use
  Company Number: PHHY2013AR062054

PATIENT
  Sex: Female

DRUGS (3)
  1. DIOVAN D [Suspect]
     Indication: HYPERTENSION
     Dosage: 1 DF (160/12.5MG) DAILY
     Route: 048
  2. DIOVAN D [Suspect]
     Indication: BUNDLE BRANCH BLOCK LEFT
  3. DIOVAN D [Suspect]
     Indication: OFF LABEL USE

REACTIONS (5)
  - Calculus bladder [Not Recovered/Not Resolved]
  - Dysuria [Not Recovered/Not Resolved]
  - Pancreatolithiasis [Not Recovered/Not Resolved]
  - Bladder disorder [Not Recovered/Not Resolved]
  - Renal disorder [Not Recovered/Not Resolved]
